FAERS Safety Report 21019521 (Version 2)
Quarter: 2022Q3

REPORT INFORMATION
  Report Type: Spontaneous
  Country: US (occurrence: US)
  Receive Date: 20220628
  Receipt Date: 20220701
  Transmission Date: 20221026
  Serious: No
  Sender: FDA-Public Use
  Company Number: US-SANOFI-01156244

PATIENT
  Age: 81 Year
  Sex: Male

DRUGS (1)
  1. DUPIXENT [Suspect]
     Active Substance: DUPILUMAB
     Indication: Asthma
     Dosage: 400 MG, 1X

REACTIONS (5)
  - Back pain [Unknown]
  - Muscle spasms [Unknown]
  - Tremor [Unknown]
  - Stomatitis [Unknown]
  - Arthralgia [Unknown]
